FAERS Safety Report 4741589-2 (Version None)
Quarter: 2005Q3

REPORT INFORMATION
  Report Type: 
  Country: None (occurrence: None)
  Receive Date: 20050801
  Receipt Date: 20050627
  Transmission Date: 20060218
  Serious: No
  Sender: FDA-Public Use
  Company Number: 2005PV000163

PATIENT
  Age: 72 Year
  Sex: Female
  Weight: 113.3993 kg

DRUGS (9)
  1. BYETTA [Suspect]
     Indication: DIABETES MELLITUS NON-INSULIN-DEPENDENT
     Dosage: 5 UG;BID;SC
     Route: 058
     Dates: start: 20050624
  2. AMARYL [Concomitant]
  3. HYZAAR [Concomitant]
  4. NORVASC [Concomitant]
  5. LIPITOR [Concomitant]
  6. LASIX [Concomitant]
  7. MICRO-K [Concomitant]
  8. PROTONIX [Concomitant]
  9. FOLIC ACID [Concomitant]

REACTIONS (3)
  - BLOOD GLUCOSE INCREASED [None]
  - DIARRHOEA [None]
  - NAUSEA [None]
